FAERS Safety Report 9201254 (Version 1)
Quarter: 2013Q1

REPORT INFORMATION
  Report Type: Spontaneous
  Country: US (occurrence: None)
  Receive Date: 20130327
  Receipt Date: 20130327
  Transmission Date: 20140127
  Serious: Yes (Hospitalization)
  Sender: FDA-Public Use
  Company Number: SYM-2013-01591

PATIENT
  Age: 82 Year
  Sex: Female
  Weight: 53.3 kg

DRUGS (11)
  1. ATIVAN [Suspect]
     Indication: PRODUCT USED FOR UNKNOWN INDICATION
     Dosage: PRN
     Route: 048
     Dates: start: 20111013, end: 20111025
  2. BAPINEUZUMAB [Suspect]
     Indication: DEMENTIA ALZHEIMER^S TYPE
     Dosage: SINGLE
     Route: 051
     Dates: start: 20101028, end: 20101028
  3. CITALOPRAM (CITALOPRAM)(CITALOPRAM) [Concomitant]
  4. ETODOLAC (ETODOLAC) (ETODOLAC) [Concomitant]
  5. OXYBUTYNIN (OXYBUTYNIN)(OXYBUTYNIN) [Concomitant]
  6. MEGESTROL (MEGESTROL)(MEGESTROL) [Concomitant]
  7. MEMANTINE (MEMANTINE) (MEMANTINE) [Concomitant]
  8. LEVOTHYROXINE (LEVOTHYROXINE) (LEVOTHYROXINE) [Concomitant]
  9. HYDROCHLOROTHIAZIDE (HYDROCHLOROTHIAZIDE) (HYDROCHLOROT- [Concomitant]
  10. VITACAL (CALCIUM W/VITAMIN D NOS)(CALCIUM, VITAMIN D [Concomitant]
  11. ASPIRIN (ACETYLSALICYLIC ACID)(ACETYLSALICYLIC ACID) [Concomitant]

REACTIONS (9)
  - Fall [None]
  - Accident [None]
  - Hip fracture [None]
  - Fracture displacement [None]
  - Haemorrhagic anaemia [None]
  - Anaemia postoperative [None]
  - Lymphocyte percentage decreased [None]
  - Blood urea increased [None]
  - Platelet count decreased [None]
